FAERS Safety Report 9178508 (Version 1)
Quarter: 2013Q1

REPORT INFORMATION
  Report Type: Spontaneous
  Country: GB (occurrence: GB)
  Receive Date: 20130321
  Receipt Date: 20130321
  Transmission Date: 20140127
  Serious: Yes (Life-Threatening, Other)
  Sender: FDA-Public Use
  Company Number: GB-ELI_LILLY_AND_COMPANY-GB201303002248

PATIENT
  Age: 11 Year
  Sex: Male
  Weight: 32.5 kg

DRUGS (5)
  1. STRATTERA [Suspect]
     Indication: ATTENTION DEFICIT/HYPERACTIVITY DISORDER
     Dosage: 40 MG, UNKNOWN
     Route: 048
     Dates: start: 20121023, end: 20121213
  2. CONCERTA XL [Concomitant]
     Indication: ATTENTION DEFICIT/HYPERACTIVITY DISORDER
     Dosage: 27 MG, UNKNOWN
     Route: 048
     Dates: start: 20120731
  3. LEVETIRACETAM [Concomitant]
     Indication: EPILEPSY
     Dosage: 1250 MG, BID
     Dates: start: 2006
  4. MIDAZOLAM [Concomitant]
     Dosage: UNK
     Route: 002
  5. SODIUM VALPROATE [Concomitant]
     Indication: EPILEPSY
     Dosage: 700 MG, BID
     Route: 048
     Dates: start: 2006

REACTIONS (2)
  - Grand mal convulsion [Recovered/Resolved]
  - Epilepsy [Recovered/Resolved]
